FAERS Safety Report 16849246 (Version 1)
Quarter: 2019Q4

REPORT INFORMATION
  Report Type: Spontaneous
  Country: US (occurrence: US)
  Receive Date: 20190924
  Receipt Date: 20190924
  Transmission Date: 20200122
  Serious: Yes (Other)
  Sender: FDA-Public Use
  Company Number: None

PATIENT
  Age: 71 Year
  Sex: Female
  Weight: 63 kg

DRUGS (4)
  1. XIIDRA [Suspect]
     Active Substance: LIFITEGRAST
     Indication: DRUG THERAPY
     Dosage: ?          QUANTITY:2 DROP(S);?
     Route: 047
     Dates: start: 20190810, end: 20190822
  2. METAMUCIL [Concomitant]
     Active Substance: PLANTAGO SEED
  3. VITAMIN D [Concomitant]
     Active Substance: VITAMIN D NOS
  4. DEXAMETHASONE 0.1% [Concomitant]
     Active Substance: DEXAMETHASONE

REACTIONS (2)
  - Eye irritation [None]
  - Eye infection [None]

NARRATIVE: CASE EVENT DATE: 20190810
